FAERS Safety Report 5245797-6 (Version None)
Quarter: 2007Q1

REPORT INFORMATION
  Report Type: 
  Country: None (occurrence: None)
  Receive Date: 20070223
  Receipt Date: 20070216
  Transmission Date: 20070707
  Serious: Yes (Disabling, Other)
  Sender: FDA-Public Use
  Company Number: JP-PFIZER INC-2007013981

PATIENT
  Sex: Female

DRUGS (3)
  1. ATARAX [Suspect]
     Indication: HYPERVENTILATION
     Route: 030
     Dates: start: 20070212, end: 20070212
  2. ATARAX [Suspect]
     Indication: ATONIC SEIZURES
  3. DRUG, UNSPECIFIED [Concomitant]

REACTIONS (5)
  - ASTHENIA [None]
  - DEPRESSED LEVEL OF CONSCIOUSNESS [None]
  - FEELING ABNORMAL [None]
  - MALAISE [None]
  - TREMOR [None]
